FAERS Safety Report 5230067-2 (Version None)
Quarter: 2007Q1

REPORT INFORMATION
  Report Type: 
  Country: None (occurrence: None)
  Receive Date: 20070206
  Receipt Date: 20061016
  Transmission Date: 20070707
  Serious: No
  Sender: FDA-Public Use
  Company Number: US-GLAXOSMITHKLINE-A0623711A

PATIENT
  Age: 33 Year
  Sex: Female

DRUGS (1)
  1. PAROXETINE HCL [Suspect]
     Indication: PANIC DISORDER
     Route: 048
     Dates: start: 20040101

REACTIONS (2)
  - DRUG INEFFECTIVE [None]
  - PANIC REACTION [None]
